FAERS Safety Report 24801388 (Version 1)
Quarter: 2025Q1

REPORT INFORMATION
  Report Type: Spontaneous
  Country: US (occurrence: US)
  Receive Date: 20250102
  Receipt Date: 20250102
  Transmission Date: 20250408
  Serious: Yes (Other)
  Sender: Bath and Body Works
  Company Number: US-BATHANDBODY-2024-US-066668

PATIENT
  Age: 54 Year
  Sex: Female
  Weight: 101.15 kg

DRUGS (5)
  1. ALCOHOL [Suspect]
     Active Substance: ALCOHOL
     Indication: Product used for unknown indication
     Route: 055
     Dates: start: 20241216, end: 20241216
  2. LYRICA [Concomitant]
     Active Substance: PREGABALIN
  3. UNSPECIFIED INGREDIENT [Concomitant]
     Active Substance: UNSPECIFIED INGREDIENT
  4. ARMOUR THYROID [Concomitant]
     Active Substance: THYROID, PORCINE
  5. SINGULAIR [Concomitant]
     Active Substance: MONTELUKAST SODIUM

REACTIONS (4)
  - Dyspnoea [Recovered/Resolved]
  - Chest discomfort [Recovered/Resolved]
  - Wheezing [Recovered/Resolved]
  - Swelling [Recovered/Resolved]

NARRATIVE: CASE EVENT DATE: 20241216
